FAERS Safety Report 8012914-4 (Version None)
Quarter: 2011Q4

REPORT INFORMATION
  Report Type: 
  Country: None (occurrence: None)
  Receive Date: 20111229
  Receipt Date: 20111223
  Transmission Date: 20120403
  Serious: Yes (Hospitalization)
  Sender: FDA-Public Use
  Company Number: FR-JNJFOC-20111210827

PATIENT
  Age: 13 Year
  Sex: Male

DRUGS (2)
  1. CONCERTA [Suspect]
     Indication: ATTENTION DEFICIT/HYPERACTIVITY DISORDER
     Dosage: TREATMENT INITIATED SINCE SEVERAL MONTHS
     Route: 048
     Dates: end: 20111101
  2. CONCERTA [Suspect]
     Dosage: SINCE AT LEAST ONE YEAR
     Route: 048

REACTIONS (4)
  - DEPRESSIVE SYMPTOM [None]
  - IMPULSIVE BEHAVIOUR [None]
  - ANXIETY [None]
  - SUICIDAL IDEATION [None]
